FAERS Safety Report 22222390 (Version 1)
Quarter: 2023Q2

REPORT INFORMATION
  Report Type: Spontaneous
  Country: GB (occurrence: GB)
  Receive Date: 20230418
  Receipt Date: 20230418
  Transmission Date: 20230721
  Serious: Yes (Other)
  Sender: FDA-Public Use
  Company Number: GB-MHRA-MED-202304152243330960-RYFSK

PATIENT

DRUGS (2)
  1. FLUTICASONE PROPIONATE [Suspect]
     Active Substance: FLUTICASONE PROPIONATE
     Indication: Adverse drug reaction
     Dosage: 2 DF, BID; 2 SPRAYS EACH NOSTRIL BD;
     Route: 065
     Dates: start: 20220605
  2. FLUTICASONE PROPIONATE [Suspect]
     Active Substance: FLUTICASONE PROPIONATE
     Indication: Multiple allergies

REACTIONS (2)
  - Nasal ulcer [Not Recovered/Not Resolved]
  - Epistaxis [Not Recovered/Not Resolved]
